FAERS Safety Report 9468370 (Version 1)
Quarter: 2013Q3

REPORT INFORMATION
  Report Type: Spontaneous
  Country: US (occurrence: US)
  Receive Date: 20130821
  Receipt Date: 20130821
  Transmission Date: 20140515
  Serious: No
  Sender: FDA-Public Use
  Company Number: US-PFIZER INC-2013240553

PATIENT
  Age: 60 Year
  Sex: Female
  Weight: 141 kg

DRUGS (5)
  1. NEURONTIN [Suspect]
     Indication: FIBROMYALGIA
     Dosage: 2 DF, 3X/DAY
     Route: 048
     Dates: start: 2013
  2. NEURONTIN [Suspect]
     Indication: NEUROPATHY PERIPHERAL
  3. HUMIRA [Concomitant]
     Indication: RHEUMATOID ARTHRITIS
     Dosage: 40 MG, WEEKLY
  4. METFORMIN [Concomitant]
     Indication: GLUCOSE TOLERANCE IMPAIRED
     Dosage: 100 MG, UNK
  5. CALCIUM WITH D3 [Concomitant]
     Indication: OSTEOPOROSIS
     Dosage: 600 MG, 2X/DAY

REACTIONS (6)
  - Drug ineffective [Unknown]
  - Pain [Not Recovered/Not Resolved]
  - Joint swelling [Not Recovered/Not Resolved]
  - Local swelling [Not Recovered/Not Resolved]
  - Pain in extremity [Unknown]
  - Musculoskeletal pain [Unknown]
